FAERS Safety Report 8255217-5 (Version None)
Quarter: 2012Q1

REPORT INFORMATION
  Report Type: 
  Country: None (occurrence: None)
  Receive Date: 20120330
  Receipt Date: 20120319
  Transmission Date: 20120608
  Serious: Yes (Other)
  Sender: FDA-Public Use
  Company Number: 201203067

PATIENT
  Sex: Male
  Weight: 127.0072 kg

DRUGS (2)
  1. TESTIM [Suspect]
     Indication: BLOOD TESTOSTERONE DECREASED
     Dosage: 50 MG, 1 IN 1 D, TRANSDERMAL
     Route: 062
  2. NSULIN (INSULIN) [Concomitant]

REACTIONS (7)
  - SKIN ODOUR ABNORMAL [None]
  - GAIT DISTURBANCE [None]
  - TRANSIENT ISCHAEMIC ATTACK [None]
  - CHROMATURIA [None]
  - PAIN IN EXTREMITY [None]
  - FALL [None]
  - BACK PAIN [None]
